FAERS Safety Report 7077089-7 (Version None)
Quarter: 2010Q4

REPORT INFORMATION
  Report Type: 
  Country: None (occurrence: None)
  Receive Date: 20101101
  Receipt Date: 20101018
  Transmission Date: 20110411
  Serious: Yes (Other)
  Sender: FDA-Public Use
  Company Number: PHHY2009BR38221

PATIENT
  Age: 77 Year
  Sex: Female
  Weight: 52 kg

DRUGS (2)
  1. FORASEQ [Suspect]
     Indication: COUGH
     Dosage: 1 INHALATION OF EACH ACTIVE PRINCIPLE TWICE DAILY
     Dates: start: 20090902
  2. FORASEQ [Suspect]
     Indication: RESPIRATORY DISORDER

REACTIONS (7)
  - EXPIRED DRUG ADMINISTERED [None]
  - FATIGUE [None]
  - OEDEMA PERIPHERAL [None]
  - RESPIRATORY DISORDER [None]
  - SKIN DISCOLOURATION [None]
  - THROMBOSIS [None]
  - WRONG TECHNIQUE IN DRUG USAGE PROCESS [None]
